FAERS Safety Report 9556468 (Version 1)
Quarter: 2013Q3

REPORT INFORMATION
  Report Type: Spontaneous
  Country: US (occurrence: None)
  Receive Date: 20130724
  Receipt Date: 20130724
  Transmission Date: 20140515
  Serious: Yes (Other)
  Sender: FDA-Public Use
  Company Number: PHEH2013US011026

PATIENT
  Age: 37 Year
  Sex: Male

DRUGS (3)
  1. GILENYA [Suspect]
     Indication: MULTIPLE SCLEROSIS
     Route: 048
     Dates: start: 20130216
  2. PRILOSEC [Concomitant]
  3. PAXIL (PAROXETINE HYDROCHLORIDE) [Concomitant]

REACTIONS (1)
  - Somnolence [None]
